FAERS Safety Report 23804949 (Version 1)
Quarter: 2024Q2

REPORT INFORMATION
  Report Type: Spontaneous
  Country: NO (occurrence: NO)
  Receive Date: 20240501
  Receipt Date: 20240501
  Transmission Date: 20240715
  Serious: Yes (Life-Threatening, Hospitalization, Other)
  Sender: FDA-Public Use
  Company Number: None

PATIENT
  Age: 35 Year
  Sex: Female
  Weight: 63 kg

DRUGS (1)
  1. RINVOQ [Suspect]
     Active Substance: UPADACITINIB
     Indication: Crohn^s disease
     Dosage: 45 MG PER DAY
     Route: 048
     Dates: start: 20240329, end: 20240417

REACTIONS (8)
  - Intestinal haemorrhage [Recovering/Resolving]
  - Cold sweat [Unknown]
  - Heart rate increased [Unknown]
  - Dizziness [Unknown]
  - Melaena [Recovering/Resolving]
  - Chills [Unknown]
  - Headache [Unknown]
  - Crohn^s disease [Unknown]

NARRATIVE: CASE EVENT DATE: 20240101
